FAERS Safety Report 8537006-7 (Version None)
Quarter: 2012Q3

REPORT INFORMATION
  Report Type: 
  Country: None (occurrence: None)
  Receive Date: 20120725
  Receipt Date: 20120628
  Transmission Date: 20120928
  Serious: No
  Sender: FDA-Public Use
  Company Number: US-ASTRAZENECA-2012SE43831

PATIENT
  Age: 56 Year
  Sex: Female

DRUGS (2)
  1. ZANTAC [Concomitant]
     Route: 048
  2. NEXIUM [Suspect]
     Route: 048
     Dates: start: 19980101

REACTIONS (2)
  - PAIN [None]
  - DRUG DOSE OMISSION [None]
